FAERS Safety Report 12302562 (Version 1)
Quarter: 2016Q2

REPORT INFORMATION
  Report Type: Spontaneous
  Country: US (occurrence: US)
  Receive Date: 20160425
  Receipt Date: 20160425
  Transmission Date: 20160815
  Serious: No
  Sender: FDA-Public Use
  Company Number: US-SA-2015SA104373

PATIENT
  Sex: Female

DRUGS (1)
  1. LOVENOX [Suspect]
     Active Substance: ENOXAPARIN SODIUM
     Indication: THROMBOSIS
     Route: 065
     Dates: start: 2015

REACTIONS (8)
  - Injection site pain [Unknown]
  - Rash macular [Unknown]
  - Feeling abnormal [Unknown]
  - Contusion [Unknown]
  - Injection site swelling [Unknown]
  - Injection site mass [Unknown]
  - Injection site bruising [Unknown]
  - Wrong technique in product usage process [Unknown]
